FAERS Safety Report 12919179 (Version 1)
Quarter: 2016Q4

REPORT INFORMATION
  Report Type: Spontaneous
  Country: US (occurrence: US)
  Receive Date: 20161107
  Receipt Date: 20161107
  Transmission Date: 20170207
  Serious: No
  Sender: FDA-Public Use
  Company Number: US-GLAXOSMITHKLINE-US2016GSK164037

PATIENT
  Age: 54 Year
  Sex: Female

DRUGS (1)
  1. ACITRETIN CAPSULE [Suspect]
     Active Substance: ACITRETIN
     Indication: DERMATITIS
     Dosage: UNK
     Dates: start: 20160811

REACTIONS (1)
  - Product use issue [Unknown]
